FAERS Safety Report 17730045 (Version 1)
Quarter: 2020Q2

REPORT INFORMATION
  Report Type: Report from Study
  Country: US (occurrence: US)
  Receive Date: 20200430
  Receipt Date: 20200430
  Transmission Date: 20200714
  Serious: Yes (Other)
  Sender: FDA-Public Use
  Company Number: US-EXELIXIS-CABO-20027614

PATIENT
  Age: 66 Year
  Sex: Female

DRUGS (4)
  1. CABOMETYX [Suspect]
     Active Substance: CABOZANTINIB S-MALATE
     Dosage: 20 MG, QD
     Route: 048
     Dates: start: 20200321
  2. CABOMETYX [Suspect]
     Active Substance: CABOZANTINIB S-MALATE
     Indication: RENAL CELL CARCINOMA
     Dosage: 40 MG, QD
     Dates: start: 20200124, end: 202003
  3. NORCO [Concomitant]
     Active Substance: ACETAMINOPHEN\HYDROCODONE BITARTRATE
  4. HYDROCODONE [Concomitant]
     Active Substance: HYDROCODONE

REACTIONS (10)
  - Pain in extremity [Unknown]
  - Skin discolouration [Not Recovered/Not Resolved]
  - Diarrhoea [Recovering/Resolving]
  - Hypersomnia [Unknown]
  - Decreased appetite [Unknown]
  - Pleural effusion [Recovering/Resolving]
  - Abdominal distension [Unknown]
  - Nausea [Unknown]
  - Hypertension [Unknown]
  - Palmar-plantar erythrodysaesthesia syndrome [Recovered/Resolved]

NARRATIVE: CASE EVENT DATE: 202004
